FAERS Safety Report 5951245-0 (Version None)
Quarter: 2008Q4

REPORT INFORMATION
  Report Type: 
  Country: None (occurrence: None)
  Receive Date: 20081112
  Receipt Date: 20081112
  Transmission Date: 20090506
  Serious: Yes (Death, Hospitalization)
  Sender: FDA-Public Use
  Company Number: None

PATIENT
  Sex: Male
  Weight: 91.6 kg

DRUGS (2)
  1. TEMOZOLOMIDE [Suspect]
     Dosage: 7425 MG
  2. DECADRON [Concomitant]

REACTIONS (8)
  - CONFUSIONAL STATE [None]
  - DEEP VEIN THROMBOSIS [None]
  - GENERAL PHYSICAL HEALTH DETERIORATION [None]
  - HEADACHE [None]
  - PNEUMONIA [None]
  - PULMONARY ARTERY THROMBOSIS [None]
  - REFUSAL OF TREATMENT BY RELATIVE [None]
  - TUMOUR HAEMORRHAGE [None]
